FAERS Safety Report 6158624-X (Version None)
Quarter: 2009Q2

REPORT INFORMATION
  Report Type: 
  Country: None (occurrence: None)
  Receive Date: 20090415
  Receipt Date: 20090408
  Transmission Date: 20091009
  Serious: Yes (Other)
  Sender: FDA-Public Use
  Company Number: CHPA2009US09035

PATIENT
  Sex: Male

DRUGS (1)
  1. THERAFLU SEVERE COLD NIGHTTIME (NCH)(PARACETAMOL, DEXTROMETHORPHAN, PH [Suspect]
     Dosage: ORAL
     Route: 048

REACTIONS (3)
  - FAECES DISCOLOURED [None]
  - HYPERSENSITIVITY [None]
  - TESTIS CANCER [None]
